FAERS Safety Report 21697215 (Version 1)
Quarter: 2022Q4

REPORT INFORMATION
  Report Type: Other
  Country: JP (occurrence: None)
  Receive Date: 20221208
  Receipt Date: 20221208
  Transmission Date: 20230113
  Serious: Yes (Other)
  Sender: FDA-Public Use
  Company Number: JP-Saptalis Pharmaceuticals,LLC-000319

PATIENT
  Age: 65 Year
  Sex: Male

DRUGS (1)
  1. ERYTHROMYCIN [Suspect]
     Active Substance: ERYTHROMYCIN
     Indication: Sinobronchitis
     Dosage: 400 MG/DAY

REACTIONS (3)
  - Pneumonia [Recovered/Resolved]
  - Sinobronchitis [Recovered/Resolved]
  - Condition aggravated [Recovered/Resolved]
